APPROVED DRUG PRODUCT: PIPRACIL
Active Ingredient: PIPERACILLIN SODIUM
Strength: EQ 40GM BASE/VIAL **Federal Register determination that product was not discontinued or withdrawn for safety or effectiveness reasons**
Dosage Form/Route: INJECTABLE;INJECTION
Application: N050545 | Product #006
Applicant: WYETH PHARMACEUTICALS INC
Approved: Sep 30, 1985 | RLD: Yes | RS: No | Type: DISCN